FAERS Safety Report 9300877 (Version 2)
Quarter: 2013Q2

REPORT INFORMATION
  Report Type: Report from Study
  Country: US (occurrence: US)
  Receive Date: 20130521
  Receipt Date: 20130607
  Transmission Date: 20140414
  Serious: Yes (Hospitalization, Other)
  Sender: FDA-Public Use
  Company Number: US-TEVA-405891USA

PATIENT
  Age: 57 Year
  Sex: Female
  Weight: 69.39 kg

DRUGS (14)
  1. FLUOROURACIL [Suspect]
     Indication: COLORECTAL CANCER METASTATIC
     Route: 042
     Dates: start: 20130412
  2. FOLINIC ACID [Suspect]
     Indication: COLORECTAL CANCER METASTATIC
     Route: 042
     Dates: start: 20130412
  3. IRINOTECAN [Suspect]
     Indication: COLORECTAL CANCER METASTATIC
     Route: 042
     Dates: start: 20130412
  4. MORAB-004 [Suspect]
     Indication: COLORECTAL CANCER METASTATIC
     Dosage: 1.1429 MG/M2 DAILY;
     Route: 042
     Dates: start: 20121022, end: 20130329
  5. BEVACIZUMAB [Suspect]
     Indication: COLORECTAL CANCER METASTATIC
     Route: 042
     Dates: start: 20130412
  6. SENNA ALEXANDRINA [Concomitant]
  7. IBUPROFEN [Concomitant]
  8. LISINOPRIL [Concomitant]
  9. PARACETAMOL [Concomitant]
  10. DIPHENHYDRAMINE HYDROCHLORIDE [Concomitant]
  11. ONDANSETRON [Concomitant]
  12. DEXAMETHASONE [Concomitant]
  13. XGEVA (DENOSUMAB) [Concomitant]
  14. DEXAMETHASONE [Concomitant]

REACTIONS (2)
  - Caecitis [Recovered/Resolved]
  - Neutropenia [Recovered/Resolved]
